FAERS Safety Report 5221136-1 (Version None)
Quarter: 2007Q1

REPORT INFORMATION
  Report Type: 
  Country: None (occurrence: None)
  Receive Date: 20070126
  Receipt Date: 20070122
  Transmission Date: 20070707
  Serious: Yes (Other)
  Sender: FDA-Public Use
  Company Number: US-JNJFOC-20070105758

PATIENT
  Age: 75 Year
  Sex: Male
  Weight: 81.65 kg

DRUGS (4)
  1. IMODIUM A-D CREAMY MINT [Suspect]
  2. IMODIUM A-D CREAMY MINT [Suspect]
     Indication: DIARRHOEA
     Dosage: 4MG, THEN 2MG TIMES 2 DOSES
  3. LASIX [Suspect]
     Indication: DIURETIC THERAPY
     Dosage: UNKNOWN
  4. UNKNOWN MEDICATION [Concomitant]
     Indication: HYPERTENSION

REACTIONS (1)
  - SYNCOPE [None]
